FAERS Safety Report 26193161 (Version 1)
Quarter: 2025Q4

REPORT INFORMATION
  Report Type: Spontaneous
  Country: US (occurrence: US)
  Receive Date: 20251223
  Receipt Date: 20251223
  Transmission Date: 20260118
  Serious: Yes (Other)
  Sender: CIPHER
  Company Number: US-CIPHER-2025-US-000069

PATIENT
  Age: 4 Year

DRUGS (1)
  1. NATROBA [Suspect]
     Active Substance: SPINOSAD
     Indication: Lice infestation

REACTIONS (1)
  - Seizure [Unknown]
